FAERS Safety Report 8535848-5 (Version None)
Quarter: 2012Q3

REPORT INFORMATION
  Report Type: 
  Country: None (occurrence: None)
  Receive Date: 20120718
  Receipt Date: 20120718
  Transmission Date: 20120928
  Serious: Yes (Death)
  Sender: FDA-Public Use
  Company Number: None

PATIENT
  Age: 7 Year
  Sex: Female
  Weight: 15.1 kg

DRUGS (8)
  1. OXYCODONE HCL [Concomitant]
  2. DFMO 300MG CANCER PREVENTION PHARMACEUTICALS, LLC [Suspect]
     Indication: NEUROBLASTOMA
     Dosage: 600MG BID 047
     Route: 048
     Dates: start: 20120514, end: 20120529
  3. DFMO 450MG CANCER PREVENTION PHARMACEUTICALS, LLC [Suspect]
     Indication: NEUROBLASTOMA
     Dosage: 450MG BID 047
     Dates: start: 20120514, end: 20120529
  4. SEPTRA [Concomitant]
  5. ONDANSETRON [Concomitant]
  6. FENTANYL CITRATE [Concomitant]
  7. SYNTHROID [Concomitant]
  8. OXYCODONE HCL [Concomitant]

REACTIONS (13)
  - NAUSEA [None]
  - HEADACHE [None]
  - SPINAL CORD OEDEMA [None]
  - DECREASED APPETITE [None]
  - VOMITING [None]
  - ARTHRALGIA [None]
  - THROMBOCYTOPENIA [None]
  - WEIGHT DECREASED [None]
  - METASTASES TO MENINGES [None]
  - PAIN IN EXTREMITY [None]
  - ALANINE AMINOTRANSFERASE INCREASED [None]
  - METASTASES TO CENTRAL NERVOUS SYSTEM [None]
  - RADIATION INJURY [None]
